FAERS Safety Report 4770631-8 (Version None)
Quarter: 2005Q3

REPORT INFORMATION
  Report Type: 
  Country: None (occurrence: None)
  Receive Date: 20050915
  Receipt Date: 20050907
  Transmission Date: 20060218
  Serious: Yes (Other)
  Sender: FDA-Public Use
  Company Number: GB-JNJFOC-20050902230

PATIENT
  Age: 98 Year
  Sex: Female

DRUGS (2)
  1. DUROGESIC D TRANS [Suspect]
     Route: 062
  2. DUROGESIC D TRANS [Suspect]
     Indication: PAIN
     Route: 062

REACTIONS (3)
  - COMA [None]
  - DYSPNOEA [None]
  - PAIN [None]
